FAERS Safety Report 7650196-3 (Version None)
Quarter: 2011Q3

REPORT INFORMATION
  Report Type: 
  Country: None (occurrence: None)
  Receive Date: 20110802
  Receipt Date: 20110727
  Transmission Date: 20111222
  Serious: No
  Sender: FDA-Public Use
  Company Number: US-ROCHE-791424

PATIENT
  Age: 36 Year
  Sex: Male
  Weight: 86.2 kg

DRUGS (3)
  1. CHANTIX [Suspect]
     Route: 048
     Dates: start: 20110705
  2. CHANTIX [Suspect]
     Route: 048
     Dates: start: 20070101, end: 20070101
  3. KLONOPIN [Suspect]
     Indication: SLEEP DISORDER THERAPY
     Route: 048
     Dates: start: 20080101

REACTIONS (2)
  - DRUG INEFFECTIVE [None]
  - NO ADVERSE EVENT [None]
